FAERS Safety Report 6991691-X (Version None)
Quarter: 2010Q3

REPORT INFORMATION
  Report Type: 
  Country: None (occurrence: None)
  Receive Date: 20100917
  Receipt Date: 20100906
  Transmission Date: 20110219
  Serious: Yes (Other)
  Sender: FDA-Public Use
  Company Number: PHHY2010US58001

PATIENT
  Sex: Male
  Weight: 180 kg

DRUGS (13)
  1. RECLAST [Suspect]
     Dosage: 5 MG
     Dates: start: 20090414
  2. RECLAST [Suspect]
     Dosage: 5 MG
     Route: 042
     Dates: start: 20090428
  3. CRESTOR [Concomitant]
     Dosage: UNK
  4. HYDROCHLOROTHIAZIDE [Concomitant]
     Dosage: UNK
  5. ALLOPURINOL [Concomitant]
     Dosage: UNK
  6. POTASSIUM CITRATE [Concomitant]
     Dosage: UNK
  7. OMEPRAZOLE [Concomitant]
     Dosage: UNK
  8. SINGULAIR [Concomitant]
     Dosage: UNK
  9. LOVAZA [Concomitant]
     Dosage: UNK
  10. ASPIRIN [Concomitant]
     Dosage: UNK
  11. TERIPARATIDE [Concomitant]
  12. UROCUT [Concomitant]
     Indication: NEPHROLITHIASIS
     Dosage: 20 MCG
     Dates: start: 20061023
  13. HCT [Concomitant]
     Indication: NEPHROLITHIASIS
     Dosage: 25 MG

REACTIONS (2)
  - CLAVICLE FRACTURE [None]
  - ROAD TRAFFIC ACCIDENT [None]
